FAERS Safety Report 6988294-X (Version None)
Quarter: 2010Q3

REPORT INFORMATION
  Report Type: 
  Country: None (occurrence: None)
  Receive Date: 20100914
  Receipt Date: 20100907
  Transmission Date: 20110219
  Serious: Yes (Death)
  Sender: FDA-Public Use
  Company Number: 2010090021

PATIENT
  Age: 77 Year
  Sex: Male
  Weight: 69.4003 kg

DRUGS (6)
  1. ONSOLIS [Suspect]
     Indication: CANCER PAIN
     Dosage: TITRATE UP TO 4-200 MCG FILMS (Q2 HOURS, UP TO 4 TIMES DAILY), BU; 600MCG, Q2 HOURS, UP TO 4 TIMES D
     Route: 002
     Dates: start: 20100729, end: 20100805
  2. ONSOLIS [Suspect]
     Indication: CANCER PAIN
     Dosage: TITRATE UP TO 4-200 MCG FILMS (Q2 HOURS, UP TO 4 TIMES DAILY), BU; 600MCG, Q2 HOURS, UP TO 4 TIMES D
     Route: 002
     Dates: start: 20100806
  3. OXYCONTIN LA (OXYCODONE) [Concomitant]
  4. OXYCODONE [Concomitant]
  5. MEGACE (MEGESTROL) [Concomitant]
  6. XELODA [Concomitant]

REACTIONS (2)
  - MALIGNANT NEOPLASM PROGRESSION [None]
  - OESOPHAGEAL CARCINOMA [None]
